FAERS Safety Report 6998005-X (Version None)
Quarter: 2010Q3

REPORT INFORMATION
  Report Type: 
  Country: None (occurrence: None)
  Receive Date: 20100920
  Receipt Date: 20070622
  Transmission Date: 20110219
  Serious: Yes (Hospitalization, Other)
  Sender: FDA-Public Use
  Company Number: US-ASTRAZENECA-2006UW12193

PATIENT
  Age: 17845 Day
  Sex: Male
  Weight: 119.7 kg

DRUGS (10)
  1. SEROQUEL [Suspect]
     Indication: DEPRESSION
     Route: 048
     Dates: start: 20010101
  2. SEROQUEL [Suspect]
     Route: 048
     Dates: start: 20020101, end: 20030101
  3. SEROQUEL [Suspect]
     Route: 048
     Dates: start: 20030101, end: 20050101
  4. SEROQUEL [Suspect]
     Dosage: 50 MG - 900 MG
     Route: 048
     Dates: start: 20030604
  5. ZYPREXA [Suspect]
  6. EFFEXOR XR [Concomitant]
     Dosage: STRENGTH - 75 MG, 150 MG   DOSE- 75 MG - 300 MG DAILY
     Route: 048
     Dates: start: 20040715
  7. IBUPROFEN [Concomitant]
     Indication: ARTHRALGIA
     Dates: start: 20040715
  8. IBUPROFEN [Concomitant]
     Indication: DISCOMFORT
     Dates: start: 20040715
  9. BENAZEPRIL HYDROCHLORIDE [Concomitant]
     Route: 048
     Dates: start: 20040715
  10. VENLAFAXINE [Concomitant]
     Route: 048
     Dates: start: 20040715

REACTIONS (2)
  - DIABETES MELLITUS [None]
  - VISION BLURRED [None]
